FAERS Safety Report 21571843 (Version 1)
Quarter: 2022Q4

REPORT INFORMATION
  Report Type: Report from Study
  Country: US (occurrence: US)
  Receive Date: 20221109
  Receipt Date: 20221109
  Transmission Date: 20230113
  Serious: No
  Sender: FDA-Public Use
  Company Number: US-ABBVIE-4138664

PATIENT
  Sex: Female

DRUGS (1)
  1. HUMIRA [Suspect]
     Active Substance: ADALIMUMAB
     Indication: Psoriatic arthropathy
     Dosage: FORM STRENGTH 40 MG
     Route: 058

REACTIONS (5)
  - Diarrhoea [Unknown]
  - Fatigue [Recovered/Resolved]
  - Musculoskeletal disorder [Unknown]
  - Lethargy [Recovered/Resolved]
  - Contusion [Recovered/Resolved]
